FAERS Safety Report 7018219-2 (Version None)
Quarter: 2010Q3

REPORT INFORMATION
  Report Type: 
  Country: None (occurrence: None)
  Receive Date: 20100924
  Receipt Date: 20100831
  Transmission Date: 20110219
  Serious: Yes (Hospitalization)
  Sender: FDA-Public Use
  Company Number: US-000086

PATIENT
  Age: 51 Year
  Sex: Male
  Weight: 38.5557 kg

DRUGS (3)
  1. ZENPEP 10,000 UNITS [Suspect]
     Indication: PANCREATITIS
     Dosage: (2 CAPSULES WITH MEALS ORAL)
     Route: 048
     Dates: start: 20100801, end: 20100101
  2. ALLOPURINOL [Concomitant]
  3. METOPROLOL TARTRATE [Concomitant]

REACTIONS (2)
  - DECREASED APPETITE [None]
  - WEIGHT DECREASED [None]
